FAERS Safety Report 9315283 (Version 1)
Quarter: 2013Q2

REPORT INFORMATION
  Report Type: Spontaneous
  Country: AU (occurrence: AU)
  Receive Date: 20130529
  Receipt Date: 20130529
  Transmission Date: 20140414
  Serious: Yes (Hospitalization)
  Sender: FDA-Public Use
  Company Number: AU-ASTRAZENECA-2013SE35573

PATIENT
  Age: 64 Year
  Sex: Female

DRUGS (1)
  1. OMEPRAZOLE [Suspect]
     Indication: GASTROOESOPHAGEAL REFLUX DISEASE
     Route: 048

REACTIONS (4)
  - Hypocalcaemia [Recovered/Resolved]
  - Electrocardiogram QT prolonged [Unknown]
  - Hypokalaemia [Recovered/Resolved]
  - Hypomagnesaemia [Recovered/Resolved]
